FAERS Safety Report 22110750 (Version 2)
Quarter: 2023Q1

REPORT INFORMATION
  Report Type: Report from Study
  Country: US (occurrence: US)
  Receive Date: 20230317
  Receipt Date: 20230323
  Transmission Date: 20230418
  Serious: No
  Sender: FDA-Public Use
  Company Number: US-AGIOS-2303US03286

PATIENT
  Sex: Female

DRUGS (2)
  1. MITAPIVAT [Suspect]
     Active Substance: MITAPIVAT
     Indication: Pyruvate kinase deficiency anaemia
     Dosage: 10 MILLIGRAM, QD
     Route: 048
     Dates: start: 20230127
  2. MITAPIVAT [Suspect]
     Active Substance: MITAPIVAT
     Dosage: UNK
     Route: 065
     Dates: start: 20230308

REACTIONS (2)
  - Product dose omission in error [Unknown]
  - Arthritis [Unknown]
